FAERS Safety Report 10866202 (Version 1)
Quarter: 2015Q1

REPORT INFORMATION
  Report Type: Spontaneous
  Country: US (occurrence: None)
  Receive Date: 20150219
  Receipt Date: 20150219
  Transmission Date: 20150721
  Serious: No
  Sender: FDA-Public Use
  Company Number: None

PATIENT
  Age: 61 Year
  Sex: Female
  Weight: 72.58 kg

DRUGS (1)
  1. ESTRACE [Suspect]
     Active Substance: ESTRADIOL
     Indication: ATROPHY
     Dosage: 2 G, 2-3X WEEKLY, VAGINAL
     Route: 067
     Dates: start: 20150212, end: 20150217

REACTIONS (2)
  - Pruritus generalised [None]
  - Rash [None]

NARRATIVE: CASE EVENT DATE: 20150217
